FAERS Safety Report 6785962-X (Version None)
Quarter: 2010Q2

REPORT INFORMATION
  Report Type: 
  Country: None (occurrence: None)
  Receive Date: 20100623
  Receipt Date: 20100616
  Transmission Date: 20101027
  Serious: Yes (Other)
  Sender: FDA-Public Use
  Company Number: US-JNJFOC-20100605426

PATIENT
  Age: 85 Year
  Sex: Male

DRUGS (3)
  1. SPORANOX [Suspect]
     Indication: OESOPHAGEAL CANDIDIASIS
     Route: 048
  2. SPORANOX [Suspect]
     Route: 048
  3. SPORANOX [Suspect]
     Route: 048

REACTIONS (5)
  - ATRIAL FIBRILLATION [None]
  - BLOOD SODIUM DECREASED [None]
  - EXTRASYSTOLES [None]
  - HEART RATE IRREGULAR [None]
  - THERAPEUTIC RESPONSE UNEXPECTED [None]
